FAERS Safety Report 18449887 (Version 6)
Quarter: 2021Q1

REPORT INFORMATION
  Report Type: Spontaneous
  Country: US (occurrence: US)
  Receive Date: 20201102
  Receipt Date: 20210311
  Transmission Date: 20210419
  Serious: Yes (Other)
  Sender: FDA-Public Use
  Company Number: US-HORIZON-2020HZN00618

PATIENT

DRUGS (9)
  1. MONTELUKAST [Concomitant]
     Active Substance: MONTELUKAST SODIUM
  2. PROZAC [Concomitant]
     Active Substance: FLUOXETINE HYDROCHLORIDE
  3. CARVIDOPA/LEVODOPA [Concomitant]
     Dosage: 25/100 MG
  4. DULOXETINE. [Concomitant]
     Active Substance: DULOXETINE
     Dosage: 40 MG, UNK
  5. ROPINIROLE. [Concomitant]
     Active Substance: ROPINIROLE
  6. OXYBUTYNIN. [Concomitant]
     Active Substance: OXYBUTYNIN CHLORIDE
     Dosage: 5 MG, UNK
  7. RILUZOLE. [Concomitant]
     Active Substance: RILUZOLE
     Dosage: 50 MG, UNK
  8. TEPEZZA [Suspect]
     Active Substance: TEPROTUMUMAB-TRBW
     Indication: ENDOCRINE OPHTHALMOPATHY
     Dosage: UNK
     Route: 042
     Dates: start: 202004, end: 20200917
  9. VITAMIN D3 [Concomitant]
     Active Substance: CHOLECALCIFEROL
     Dosage: 1000 IU, UNK

REACTIONS (20)
  - Condition aggravated [Unknown]
  - Hypertension [Recovered/Resolved]
  - Neuropathy peripheral [Recovered/Resolved]
  - Eye pain [Unknown]
  - Ear discomfort [Not Recovered/Not Resolved]
  - Menopausal symptoms [Unknown]
  - Ageusia [Recovering/Resolving]
  - Dyspnoea [Not Recovered/Not Resolved]
  - Onychoclasis [Not Recovered/Not Resolved]
  - Amenorrhoea [Not Recovered/Not Resolved]
  - Dry eye [Unknown]
  - Alopecia [Recovering/Resolving]
  - Fatigue [Recovering/Resolving]
  - Hypoacusis [Not Recovered/Not Resolved]
  - Vulvovaginal dryness [Not Recovered/Not Resolved]
  - Diplopia [Unknown]
  - Muscle spasms [Unknown]
  - Dry mouth [Not Recovered/Not Resolved]
  - Palpitations [Recovered/Resolved]
  - Restlessness [Recovered/Resolved]

NARRATIVE: CASE EVENT DATE: 2020
